FAERS Safety Report 7632295-5 (Version None)
Quarter: 2011Q3

REPORT INFORMATION
  Report Type: 
  Country: None (occurrence: None)
  Receive Date: 20110725
  Receipt Date: 20100720
  Transmission Date: 20111222
  Serious: No
  Sender: FDA-Public Use
  Company Number: US-BRISTOL-MYERS SQUIBB COMPANY-15200496

PATIENT
  Age: 26 Year
  Sex: Female
  Weight: 59 kg

DRUGS (2)
  1. COUMADIN [Suspect]
     Indication: PORTAL VEIN THROMBOSIS
  2. LEXAPRO [Concomitant]

REACTIONS (1)
  - ALOPECIA [None]
